FAERS Safety Report 20536195 (Version 1)
Quarter: 2022Q1

REPORT INFORMATION
  Report Type: Spontaneous
  Country: US (occurrence: None)
  Receive Date: 20220302
  Receipt Date: 20220302
  Transmission Date: 20220424
  Serious: No
  Sender: FDA-Public Use
  Company Number: US-ROCHE-2838037

PATIENT
  Age: 8 Year
  Sex: Female

DRUGS (5)
  1. NUTROPIN [Suspect]
     Active Substance: SOMATROPIN
     Indication: Prader-Willi syndrome
     Dosage: FORM OF ADMIN: 5MG/2ML/ 1MG NIGHTLY
     Route: 058
     Dates: start: 202102
  2. NUTROPIN [Suspect]
     Active Substance: SOMATROPIN
  3. NUTROPIN [Suspect]
     Active Substance: SOMATROPIN
     Dosage: FORM OF ADMIN: 5MG/2ML/ 1MG NIGHTLY
     Route: 058
     Dates: start: 202010
  4. NUTROPIN [Suspect]
     Active Substance: SOMATROPIN
  5. LEVOTHYROXINE [Concomitant]
     Active Substance: LEVOTHYROXINE

REACTIONS (4)
  - Device issue [Unknown]
  - Device defective [Unknown]
  - Intentional product use issue [Unknown]
  - No adverse event [Unknown]

NARRATIVE: CASE EVENT DATE: 20201001
